FAERS Safety Report 9057494 (Version 3)
Quarter: 2013Q4

REPORT INFORMATION
  Report Type: Spontaneous
  Country: US (occurrence: US)
  Receive Date: 20130204
  Receipt Date: 20131004
  Transmission Date: 20140711
  Serious: No
  Sender: FDA-Public Use
  Company Number: US-PFIZER INC-2012158711

PATIENT
  Age: 59 Year
  Sex: Female
  Weight: 70.3 kg

DRUGS (7)
  1. ZOLOFT [Suspect]
     Indication: DEPRESSION
     Dosage: 100 MG, 1X/DAY
     Route: 048
     Dates: start: 20110726, end: 2012
  2. ZOLOFT [Suspect]
     Dosage: 100 MG, 1X/DAY
     Dates: start: 2012, end: 2013
  3. LYRICA [Concomitant]
     Indication: FIBROMYALGIA
     Dosage: 75 MG, 3X/DAY
     Route: 048
     Dates: start: 20100327
  4. PRAVASTATIN [Concomitant]
     Dosage: UNK
  5. XANAX [Concomitant]
     Dosage: UNK
  6. FLEXERIL [Concomitant]
     Dosage: UNK
  7. CELEBREX [Concomitant]
     Dosage: UNK

REACTIONS (3)
  - Stress [Unknown]
  - Insomnia [Unknown]
  - Drug ineffective [Unknown]
